FAERS Safety Report 6105714-3 (Version None)
Quarter: 2009Q1

REPORT INFORMATION
  Report Type: 
  Country: None (occurrence: None)
  Receive Date: 20090304
  Receipt Date: 20090304
  Transmission Date: 20090719
  Serious: No
  Sender: FDA-Public Use
  Company Number: None

PATIENT

DRUGS (1)
  1. EVISTA [Suspect]
     Dosage: 60 MG ONCE A DAY

REACTIONS (7)
  - GAIT DISTURBANCE [None]
  - INFLAMMATION [None]
  - MUSCLE SPASMS [None]
  - MUSCLE TIGHTNESS [None]
  - MYALGIA [None]
  - SLEEP DISORDER [None]
  - WEIGHT BEARING DIFFICULTY [None]
